FAERS Safety Report 12222801 (Version 2)
Quarter: 2016Q2

REPORT INFORMATION
  Report Type: Spontaneous
  Country: JP (occurrence: JP)
  Receive Date: 20160330
  Receipt Date: 20160420
  Transmission Date: 20160815
  Serious: Yes (Death, Hospitalization)
  Sender: FDA-Public Use
  Company Number: JP-EISAI MEDICAL RESEARCH-EC-2016-014216

PATIENT
  Age: 63 Year
  Sex: Female

DRUGS (1)
  1. LENVIMA [Suspect]
     Active Substance: LENVATINIB
     Indication: ANAPLASTIC THYROID CANCER
     Route: 048
     Dates: start: 20160129

REACTIONS (5)
  - Oesophageal fistula [Not Recovered/Not Resolved]
  - Malignant neoplasm progression [Fatal]
  - Pyrexia [Unknown]
  - Palmar-plantar erythrodysaesthesia syndrome [Unknown]
  - Haematemesis [Not Recovered/Not Resolved]

NARRATIVE: CASE EVENT DATE: 2016
